FAERS Safety Report 9430409 (Version 1)
Quarter: 2013Q3

REPORT INFORMATION
  Report Type: Spontaneous
  Country: CN (occurrence: CN)
  Receive Date: 20130730
  Receipt Date: 20130730
  Transmission Date: 20140515
  Serious: Yes (Hospitalization)
  Sender: FDA-Public Use
  Company Number: CN-GLAXOSMITHKLINE-B0903159A

PATIENT
  Age: 47 Year
  Sex: Male
  Weight: 62.5 kg

DRUGS (3)
  1. SERETIDE (50MCG/100MCG) [Suspect]
     Indication: ASTHMA
     Dosage: 1PUFF TWICE PER DAY
     Route: 055
     Dates: start: 201306
  2. SERETIDE (50MCG/250MCG) [Suspect]
     Indication: ASTHMA
     Dosage: 1PUFF TWICE PER DAY
     Route: 055
  3. ZENTEL [Suspect]
     Indication: HELMINTHIC INFECTION
     Dosage: 2TAB PER DAY
     Route: 048

REACTIONS (8)
  - Loss of consciousness [Unknown]
  - Brain stem syndrome [Unknown]
  - Blood viscosity increased [Unknown]
  - Drug ineffective [Recovered/Resolved]
  - Dizziness [Recovered/Resolved]
  - Hypoaesthesia [Recovered/Resolved]
  - Vision blurred [Recovered/Resolved]
  - Product quality issue [Unknown]
